FAERS Safety Report 7329025-3 (Version None)
Quarter: 2011Q1

REPORT INFORMATION
  Report Type: 
  Country: None (occurrence: None)
  Receive Date: 20110303
  Receipt Date: 20110225
  Transmission Date: 20110831
  Serious: Yes (Other)
  Sender: FDA-Public Use
  Company Number: CA-BRISTOL-MYERS SQUIBB COMPANY-15138241

PATIENT
  Age: 83 Year
  Sex: Female

DRUGS (9)
  1. SYNTHROID [Concomitant]
  2. PANTOLOC [Concomitant]
  3. NABUMETONE [Concomitant]
     Dosage: APO-NABUMETONE
  4. ASA [Concomitant]
  5. GABAPENTIN [Concomitant]
     Dosage: PMS-GABAPENTIN
  6. VITAMIN D [Concomitant]
  7. PLAQUENIL [Concomitant]
  8. ORENCIA [Suspect]
     Indication: RHEUMATOID ARTHRITIS
     Dosage: NO OF INF-11,14SEP10,RECENT INFUSION ON 01FEB11.
     Route: 042
     Dates: start: 20100528
  9. CALCIUM [Concomitant]

REACTIONS (5)
  - VISUAL ACUITY REDUCED [None]
  - ASTHENIA [None]
  - HEADACHE [None]
  - OCULAR ICTERUS [None]
  - DRUG INEFFECTIVE [None]
